FAERS Safety Report 8246413-1 (Version None)
Quarter: 2012Q1

REPORT INFORMATION
  Report Type: 
  Country: None (occurrence: None)
  Receive Date: 20120330
  Receipt Date: 20120319
  Transmission Date: 20120608
  Serious: Yes (Death, Other)
  Sender: FDA-Public Use
  Company Number: US-SANOFI-AVENTIS-2012SA019933

PATIENT

DRUGS (1)
  1. ELOXATIN [Suspect]
     Route: 033

REACTIONS (3)
  - BRAIN HERNIATION [None]
  - OFF LABEL USE [None]
  - BRAIN OEDEMA [None]
